FAERS Safety Report 9670080 (Version 2)
Quarter: 2014Q2

REPORT INFORMATION
  Report Type: Spontaneous
  Country: DE (occurrence: DE)
  Receive Date: 20131105
  Receipt Date: 20140507
  Transmission Date: 20141212
  Serious: Yes (Other)
  Sender: FDA-Public Use
  Company Number: DE-ABBVIE-13P-062-1163849-00

PATIENT
  Age: 16 Year
  Sex: Male
  Weight: 65 kg

DRUGS (3)
  1. KALETRA [Suspect]
     Indication: HIV INFECTION
     Dates: start: 200505, end: 20111227
  2. KALETRA [Suspect]
     Dates: start: 20111227, end: 20130805
  3. KIVEXA [Concomitant]
     Indication: HIV INFECTION
     Dates: end: 20130805

REACTIONS (3)
  - Bradycardia [Recovering/Resolving]
  - Electrocardiogram QT prolonged [Recovering/Resolving]
  - Sinus arrhythmia [Recovering/Resolving]
